FAERS Safety Report 8315449-4 (Version None)
Quarter: 2012Q2

REPORT INFORMATION
  Report Type: 
  Country: None (occurrence: None)
  Receive Date: 20120426
  Receipt Date: 20120424
  Transmission Date: 20120825
  Serious: Yes (Other)
  Sender: FDA-Public Use
  Company Number: US-ABBOTT-12P-163-0928639-00

PATIENT
  Sex: Female
  Weight: 74.456 kg

DRUGS (10)
  1. POTASSIUM CHLORIDE [Concomitant]
     Indication: PRODUCT USED FOR UNKNOWN INDICATION
     Route: 048
     Dates: start: 20111205, end: 20120225
  2. CAFFEINE CITRATE [Concomitant]
     Indication: PRODUCT USED FOR UNKNOWN INDICATION
     Route: 048
     Dates: start: 20111205, end: 20120225
  3. VITAMIN B-12 [Concomitant]
     Indication: PRODUCT USED FOR UNKNOWN INDICATION
     Route: 048
     Dates: start: 20111205, end: 20120225
  4. CAFFEINE CITRATE [Concomitant]
     Indication: PRODUCT USED FOR UNKNOWN INDICATION
     Route: 048
     Dates: start: 20111205, end: 20120225
  5. TYLENOL (CAPLET) [Concomitant]
     Indication: PYREXIA
     Route: 048
     Dates: start: 20111205, end: 20120225
  6. HUMIRA [Suspect]
     Indication: PRODUCT USED FOR UNKNOWN INDICATION
     Dates: start: 20111205, end: 20120225
  7. FISH OIL [Concomitant]
     Indication: PRODUCT USED FOR UNKNOWN INDICATION
     Route: 048
     Dates: start: 20111205, end: 20120225
  8. VITAMIN D [Concomitant]
     Indication: PRODUCT USED FOR UNKNOWN INDICATION
     Route: 048
     Dates: start: 20111205, end: 20120225
  9. PRENATAL VITAMIN NOS [Concomitant]
     Indication: PRODUCT USED FOR UNKNOWN INDICATION
     Route: 048
     Dates: start: 20120109, end: 20120225
  10. CITRACAL [Concomitant]
     Indication: PRODUCT USED FOR UNKNOWN INDICATION
     Route: 048
     Dates: start: 20111205, end: 20120225

REACTIONS (4)
  - RESPIRATORY TRACT INFECTION [None]
  - FOETAL HEART RATE ABNORMAL [None]
  - ABORTION SPONTANEOUS COMPLETE [None]
  - VAGINAL HAEMORRHAGE [None]
